FAERS Safety Report 4913166-1 (Version None)
Quarter: 2006Q1

REPORT INFORMATION
  Report Type: 
  Country: None (occurrence: None)
  Receive Date: 20060215
  Receipt Date: 20051004
  Transmission Date: 20060701
  Serious: Yes (Hospitalization, Disabling, Other)
  Sender: FDA-Public Use
  Company Number: US-MERCK-0510USA03996

PATIENT
  Age: 60 Year
  Sex: Female
  Weight: 75 kg

DRUGS (7)
  1. VIOXX [Suspect]
     Indication: ARTHRITIS
     Route: 048
     Dates: start: 20000209, end: 20030321
  2. [THERAPY UNSPECIFIED] [Concomitant]
     Route: 065
  3. PATANOL [Concomitant]
     Route: 065
  4. ACETAMINOPHEN AND PROPOXYPHENE NAPSYLATE [Concomitant]
     Route: 065
  5. TRIAMCINOLONE [Concomitant]
     Route: 065
  6. ULTRAM [Concomitant]
     Route: 065
  7. XENICAL [Concomitant]
     Route: 065

REACTIONS (15)
  - ACUTE MYOCARDIAL INFARCTION [None]
  - ARTHRODESIS [None]
  - ARTHROPATHY [None]
  - BACTERIAL INFECTION [None]
  - BUNION [None]
  - CORONARY ARTERY DISEASE [None]
  - DEPRESSION [None]
  - DYSPEPSIA [None]
  - EYE INFECTION [None]
  - HYPOTHYROIDISM [None]
  - INSOMNIA [None]
  - OBESITY [None]
  - OSTEOPENIA [None]
  - RECTAL HAEMORRHAGE [None]
  - SKIN IRRITATION [None]
